FAERS Safety Report 8344886-7 (Version None)
Quarter: 2012Q2

REPORT INFORMATION
  Report Type: 
  Country: None (occurrence: None)
  Receive Date: 20120508
  Receipt Date: 20080819
  Transmission Date: 20120825
  Serious: Yes (Hospitalization)
  Sender: FDA-Public Use
  Company Number: US-TEVA-US024421

PATIENT

DRUGS (1)
  1. FENTORA [Suspect]
     Dosage: 1200 MICROGRAM;
     Route: 002

REACTIONS (1)
  - CHEST PAIN [None]
